FAERS Safety Report 9367935 (Version 1)
Quarter: 2013Q2

REPORT INFORMATION
  Report Type: Spontaneous
  Country: US (occurrence: US)
  Receive Date: 20130625
  Receipt Date: 20130625
  Transmission Date: 20140414
  Serious: No
  Sender: FDA-Public Use
  Company Number: US-ASTELLAS-2012US010691

PATIENT
  Sex: Female
  Weight: 136 kg

DRUGS (7)
  1. VESICARE [Suspect]
     Indication: HYPERTONIC BLADDER
     Dosage: 10 MG, UID/QD
     Route: 048
  2. VESICARE [Suspect]
     Dosage: 5 MG, UID/QD
     Route: 048
  3. VESICARE [Suspect]
     Dosage: 10 MG, UID/QD
     Route: 048
     Dates: start: 2012
  4. NEUROTIN                           /01003001/ [Concomitant]
     Indication: NEUROPATHY PERIPHERAL
     Dosage: 300 MG, UID/QD
     Route: 048
  5. TRAZODONE [Concomitant]
     Indication: DEPRESSION
     Dosage: 100 MG, UID/QD
     Route: 048
  6. PROPYL P-XYLENE [Concomitant]
     Indication: HYPERTENSION
     Dosage: 150 MG, UID/QD
     Route: 048
  7. ASPIRIN [Concomitant]
     Indication: HYPERTENSION
     Dosage: 325 MG, UID/QD
     Route: 048

REACTIONS (3)
  - Drug ineffective [Unknown]
  - Nocturia [Unknown]
  - Micturition urgency [Unknown]
